FAERS Safety Report 5744760-6 (Version None)
Quarter: 2008Q2

REPORT INFORMATION
  Report Type: 
  Country: None (occurrence: None)
  Receive Date: 20080520
  Receipt Date: 20080513
  Transmission Date: 20081010
  Serious: No
  Sender: FDA-Public Use
  Company Number: US-BAXTER-2008BH001753

PATIENT
  Age: 75 Year
  Sex: Female
  Weight: 81 kg

DRUGS (7)
  1. HEPARIN SODIUM [Suspect]
     Indication: PROPHYLAXIS
     Route: 033
     Dates: start: 20070101, end: 20080201
  2. COREG [Concomitant]
     Indication: CARDIAC DISORDER
     Route: 048
     Dates: start: 19960101
  3. ISORBIDE [Concomitant]
     Indication: CARDIAC DISORDER
     Route: 048
     Dates: start: 19960101
  4. LANTUS [Concomitant]
     Indication: DIABETES MELLITUS
     Dosage: DOSE UNIT:UNKNOWN
     Route: 065
     Dates: start: 19580101
  5. CALCITRIOL [Concomitant]
     Indication: VITAMIN SUPPLEMENTATION
     Route: 048
     Dates: start: 20070101
  6. LEVOTHYROXINE SODIUM [Concomitant]
     Indication: HYPOTHYROIDISM
     Route: 048
     Dates: start: 20040101
  7. LASIX [Concomitant]
     Indication: HYPERTENSION
     Route: 048
     Dates: start: 20040101

REACTIONS (3)
  - ABDOMINAL PAIN UPPER [None]
  - HEADACHE [None]
  - RASH [None]
